FAERS Safety Report 8049991-0 (Version None)
Quarter: 2012Q1

REPORT INFORMATION
  Report Type: 
  Country: None (occurrence: None)
  Receive Date: 20120117
  Receipt Date: 20120116
  Transmission Date: 20120608
  Serious: Yes (Life-Threatening, Other)
  Sender: FDA-Public Use
  Company Number: JP-PFIZER INC-2011308016

PATIENT
  Age: 92 Year
  Sex: Female
  Weight: 45 kg

DRUGS (5)
  1. KEPPRA [Concomitant]
     Dosage: 2000 MG/DAY
     Route: 048
     Dates: start: 20111107
  2. GABAPENTIN [Suspect]
     Indication: EPILEPSY
     Dosage: 1200 MG/DAY
     Route: 048
     Dates: start: 20110716, end: 20111107
  3. KEPPRA [Concomitant]
     Dosage: 2250 MG/DAY
     Route: 048
     Dates: start: 20110716, end: 20111106
  4. ZONISAMIDE [Concomitant]
     Dosage: UNK
     Dates: start: 20110101
  5. ZOLPIDEM [Concomitant]
     Dosage: 5 MG/DAY
     Route: 048

REACTIONS (2)
  - MYOCLONIC EPILEPSY [None]
  - CONVULSION [None]
